FAERS Safety Report 16258525 (Version 1)
Quarter: 2019Q2

REPORT INFORMATION
  Report Type: Spontaneous
  Country: US (occurrence: US)
  Receive Date: 20190430
  Receipt Date: 20190430
  Transmission Date: 20190711
  Serious: Yes (Hospitalization)
  Sender: FDA-Public Use
  Company Number: US-TEIKOKU PHARMA USA-TPU2019-00386

PATIENT
  Age: 73 Year
  Sex: Female
  Weight: 50.85 kg

DRUGS (1)
  1. LIDOCAINE PATCH [Suspect]
     Active Substance: LIDOCAINE
     Indication: PAIN
     Dosage: APPLIED TO LOWER AND MIDDLE BACK AND CLOSE TO NECK

REACTIONS (4)
  - Inappropriate schedule of product administration [Unknown]
  - Gastric disorder [Unknown]
  - Gastric operation [Unknown]
  - Prescription drug used without a prescription [Unknown]

NARRATIVE: CASE EVENT DATE: 2019
